FAERS Safety Report 6331279-7 (Version None)
Quarter: 2009Q3

REPORT INFORMATION
  Report Type: 
  Country: None (occurrence: None)
  Receive Date: 20090827
  Receipt Date: 20090818
  Transmission Date: 20100115
  Serious: Yes (Hospitalization)
  Sender: FDA-Public Use
  Company Number: JP-ELI_LILLY_AND_COMPANY-JP200908002058

PATIENT
  Age: 72 Year
  Sex: Male

DRUGS (8)
  1. ALIMTA [Suspect]
     Indication: NON-SMALL CELL LUNG CANCER RECURRENT
     Dosage: 500 MG/M2, UNKNOWN
     Route: 042
     Dates: start: 20090629, end: 20090721
  2. FOLIAMIN [Concomitant]
     Route: 048
     Dates: start: 20090618
  3. METHYCOBAL [Concomitant]
     Dosage: 1 MG, OTHER
     Route: 030
     Dates: start: 20090618
  4. DIOVAN [Concomitant]
     Indication: HYPERTENSION
     Dosage: 40 MG, DAILY (1/D)
     Route: 048
  5. SIGMART [Concomitant]
     Dosage: 5 MG, 3/D
     Route: 048
  6. TAKEPRON [Concomitant]
     Indication: GASTRIC ULCER
     Dosage: 15 MG, DAILY (1/D)
     Route: 048
  7. MUCOSTA [Concomitant]
     Dosage: 100 MG, 3/D
     Route: 048
  8. CODEINE PHOSPHATE [Concomitant]
     Indication: COUGH
     Dosage: 30 MG, AS NEEDED
     Route: 048
     Dates: start: 20090721

REACTIONS (1)
  - INTERSTITIAL LUNG DISEASE [None]
